FAERS Safety Report 21678465 (Version 1)
Quarter: 2022Q4

REPORT INFORMATION
  Report Type: Report from Study
  Country: MY (occurrence: MY)
  Receive Date: 20221203
  Receipt Date: 20221203
  Transmission Date: 20230112
  Serious: Yes (Hospitalization)
  Sender: FDA-Public Use
  Company Number: MY-002147023-NVSC2022MY266165

PATIENT
  Sex: Female

DRUGS (1)
  1. SECUKINUMAB [Suspect]
     Active Substance: SECUKINUMAB
     Indication: Ankylosing spondylitis
     Dosage: UNK
     Route: 058
     Dates: start: 20201214

REACTIONS (4)
  - Jaundice [Not Recovered/Not Resolved]
  - Hepatomegaly [Unknown]
  - Abdominal distension [Unknown]
  - Infection [Unknown]
